FAERS Safety Report 9788055 (Version 1)
Quarter: 2013Q4

REPORT INFORMATION
  Report Type: Spontaneous
  Country: US (occurrence: None)
  Receive Date: 20131227
  Receipt Date: 20131227
  Transmission Date: 20140711
  Serious: Yes (Hospitalization)
  Sender: FDA-Public Use
  Company Number: None

PATIENT
  Age: 34 Year
  Sex: Female
  Weight: 109.6 kg

DRUGS (4)
  1. VANCOMYCIN [Suspect]
     Indication: PNEUMONIA
     Route: 042
  2. IOHEXOL [Suspect]
     Indication: SCAN WITH CONTRAST
     Dosage: OMNIPAQ
     Route: 048
  3. TORADOL [Suspect]
     Route: 042
  4. CLOMID [Concomitant]

REACTIONS (9)
  - Renal failure acute [None]
  - Nephropathy toxic [None]
  - Renal tubular necrosis [None]
  - Tachycardia [None]
  - Pyrexia [None]
  - Hypoxia [None]
  - Pneumonia [None]
  - Gastric perforation [None]
  - Perihepatic abscess [None]
